FAERS Safety Report 18314938 (Version 2)
Quarter: 2020Q4

REPORT INFORMATION
  Report Type: Report from Study
  Country: MX (occurrence: MX)
  Receive Date: 20200925
  Receipt Date: 20201003
  Transmission Date: 20210113
  Serious: Yes (Death)
  Sender: FDA-Public Use
  Company Number: NVSC2020MX262159

PATIENT
  Sex: Female
  Weight: 48 kg

DRUGS (2)
  1. ENTRESTO [Suspect]
     Active Substance: SACUBITRIL\VALSARTAN
     Indication: CARDIAC DISORDER
     Dosage: 50 MG, QD (1 (50 MG))
     Route: 065
     Dates: start: 2018
  2. ENTRESTO [Suspect]
     Active Substance: SACUBITRIL\VALSARTAN
     Indication: RENAL FAILURE

REACTIONS (4)
  - Liver disorder [Fatal]
  - Product use in unapproved indication [Unknown]
  - Renal failure [Fatal]
  - Product prescribing error [Unknown]
